FAERS Safety Report 9836070 (Version 2)
Quarter: 2014Q1

REPORT INFORMATION
  Report Type: Report from Study
  Country: NL (occurrence: NL)
  Receive Date: 20140122
  Receipt Date: 20140203
  Transmission Date: 20141002
  Serious: Yes (Hospitalization, Other)
  Sender: FDA-Public Use
  Company Number: NL-ABBVIE-14P-114-1191538-00

PATIENT
  Age: 44 Year
  Sex: Female

DRUGS (1)
  1. LUCRIN [Suspect]
     Indication: ENDOMETRIOSIS
     Route: 058
     Dates: start: 20131016

REACTIONS (6)
  - Surgery [Recovered/Resolved]
  - Injury [Unknown]
  - Lower limb fracture [Recovered/Resolved]
  - Ligament injury [Recovered/Resolved]
  - Oophorectomy [Recovered/Resolved]
  - Endometriosis [Recovered/Resolved]
